FAERS Safety Report 26094042 (Version 1)
Quarter: 2025Q4

REPORT INFORMATION
  Report Type: Spontaneous
  Country: US (occurrence: US)
  Receive Date: 20251126
  Receipt Date: 20251126
  Transmission Date: 20260118
  Serious: No
  Sender: AMGEN
  Company Number: US-AMGEN-USASP2025230397

PATIENT
  Sex: Female

DRUGS (2)
  1. MVASI [Suspect]
     Active Substance: BEVACIZUMAB-AWWB
     Indication: Ovarian cancer
     Dosage: 890 MILLIGRAM ( 2 X 400 MG VIALS AND 1 X 100 MG VIAL)
     Route: 065
  2. MVASI [Suspect]
     Active Substance: BEVACIZUMAB-AWWB
     Dosage: 890 MILLIGRAM ( 2 X 400 MG VIALS AND 1 X 100 MG VIAL)
     Route: 065

REACTIONS (1)
  - Ill-defined disorder [Unknown]
